FAERS Safety Report 25704062 (Version 1)
Quarter: 2025Q3

REPORT INFORMATION
  Report Type: Spontaneous
  Country: JP (occurrence: JP)
  Receive Date: 20250820
  Receipt Date: 20250820
  Transmission Date: 20251020
  Serious: Yes (Hospitalization, Other)
  Sender: Phathom Pharmaceuticals
  Company Number: JP-PHATHOM PHARMACEUTICALS INC.-2025PHT02210

PATIENT
  Age: 84 Year
  Sex: Male
  Weight: 50 kg

DRUGS (6)
  1. VONOPRAZAN FUMARATE [Suspect]
     Active Substance: VONOPRAZAN FUMARATE
     Indication: Product used for unknown indication
     Route: 048
     Dates: start: 202405, end: 20250622
  2. REXULTI [Suspect]
     Active Substance: BREXPIPRAZOLE
     Indication: Dementia Alzheimer^s type
     Dosage: 1 MG, 1X/DAY
     Route: 048
     Dates: start: 20250509, end: 20250611
  3. MEMANTINE HYDROCHLORIDE [Suspect]
     Active Substance: MEMANTINE HYDROCHLORIDE
     Indication: Dementia
     Dosage: 10 MG, 1X/DAY
     Route: 048
     Dates: start: 20250509, end: 20250611
  4. SUVOREXANT [Concomitant]
     Active Substance: SUVOREXANT
     Dates: start: 20240501, end: 20250622
  5. RISPERIDONE [Concomitant]
     Active Substance: RISPERIDONE
     Dates: start: 20250509, end: 20250611
  6. TIAPRIDE [Concomitant]
     Active Substance: TIAPRIDE
     Dates: start: 202405, end: 20250611

REACTIONS (2)
  - Rhabdomyolysis [Not Recovered/Not Resolved]
  - Drug eruption [Recovered/Resolved]

NARRATIVE: CASE EVENT DATE: 20250601
